FAERS Safety Report 10195945 (Version 1)
Quarter: 2014Q2

REPORT INFORMATION
  Report Type: Spontaneous
  Country: US (occurrence: None)
  Receive Date: 20140522
  Receipt Date: 20140522
  Transmission Date: 20141212
  Serious: Yes (Hospitalization)
  Sender: FDA-Public Use
  Company Number: UNT-2014-000177

PATIENT
  Age: 24 Year
  Sex: Female
  Weight: 59.9 kg

DRUGS (1)
  1. REMODULIN [Suspect]
     Indication: PULMONARY ARTERIAL HYPERTENSION
     Route: 041
     Dates: start: 20100105

REACTIONS (4)
  - Lung transplant [None]
  - Heart transplant [None]
  - Lung disorder [None]
  - Cardiac disorder [None]
